FAERS Safety Report 14539910 (Version 3)
Quarter: 2022Q3

REPORT INFORMATION
  Report Type: Spontaneous
  Country: US (occurrence: US)
  Receive Date: 20180216
  Receipt Date: 20220711
  Transmission Date: 20221027
  Serious: No
  Sender: FDA-Public Use
  Company Number: US-JNJFOC-20180206351

PATIENT
  Age: 18 Year
  Sex: Male

DRUGS (9)
  1. RISPERDAL [Suspect]
     Active Substance: RISPERIDONE
     Indication: Schizophrenia
     Dosage: VARYING DOSES OF 01 MG, 02 MG AND 03 MG
     Route: 048
     Dates: start: 20060523, end: 20080427
  2. RISPERDAL [Suspect]
     Active Substance: RISPERIDONE
     Indication: Drug therapy
     Route: 048
     Dates: end: 20100426
  3. RISPERDAL [Suspect]
     Active Substance: RISPERIDONE
     Indication: Attention deficit hyperactivity disorder
  4. RISPERIDONE [Suspect]
     Active Substance: RISPERIDONE
     Indication: Agitation
     Route: 048
     Dates: start: 20080904, end: 20081230
  5. RISPERIDONE [Suspect]
     Active Substance: RISPERIDONE
     Indication: Drug therapy
     Dosage: VARYING DOSES OF 0.5 MG, 01 MG, 02 MG, 03 MG AND VARYING FREQUENCY NOTED EVERY DAY OR NIGHT
     Route: 048
     Dates: start: 20091030, end: 20170701
  6. RISPERIDONE [Suspect]
     Active Substance: RISPERIDONE
     Indication: Bipolar disorder
  7. RISPERIDONE [Suspect]
     Active Substance: RISPERIDONE
     Indication: Depression
  8. RISPERIDONE [Suspect]
     Active Substance: RISPERIDONE
     Indication: Attention deficit hyperactivity disorder
  9. RISPERDAL [Suspect]
     Active Substance: RISPERIDONE
     Indication: Drug therapy
     Route: 048
     Dates: start: 20090814

REACTIONS (5)
  - Emotional distress [Unknown]
  - Gynaecomastia [Unknown]
  - Therapy cessation [Unknown]
  - Off label use [Unknown]
  - Product use in unapproved indication [Unknown]

NARRATIVE: CASE EVENT DATE: 20090814
